FAERS Safety Report 9241806 (Version 5)
Quarter: 2015Q4

REPORT INFORMATION
  Report Type: Spontaneous
  Country: US (occurrence: US)
  Receive Date: 20130419
  Receipt Date: 20151001
  Transmission Date: 20160305
  Serious: Yes (Other)
  Sender: FDA-Public Use
  Company Number: PHEH2013US008603

PATIENT
  Sex: Male

DRUGS (4)
  1. DIOVAN [Suspect]
     Active Substance: VALSARTAN
     Indication: PRODUCT USED FOR UNKNOWN INDICATION
     Dosage: 320 MG, QD
     Route: 065
     Dates: start: 20100129
  2. TEKTURNA [Suspect]
     Active Substance: ALISKIREN HEMIFUMARATE
     Indication: PRODUCT USED FOR UNKNOWN INDICATION
     Dosage: 300 MG, QD
     Route: 048
     Dates: start: 20100129
  3. CRESTOR [Concomitant]
     Active Substance: ROSUVASTATIN CALCIUM
     Indication: PRODUCT USED FOR UNKNOWN INDICATION
     Dosage: 20 MG, ONCE/SINGLE, DAILY
     Route: 065
     Dates: start: 20100217
  4. HYDROCHLOROTHIAZIDE. [Concomitant]
     Active Substance: HYDROCHLOROTHIAZIDE
     Indication: PRODUCT USED FOR UNKNOWN INDICATION
     Dosage: 25 MG, ONCE/SINGLE, DAILY
     Route: 065
     Dates: start: 20100802

REACTIONS (67)
  - Proteinuria [Unknown]
  - Temperature intolerance [Unknown]
  - Hyperkeratosis [Unknown]
  - Confusional state [Unknown]
  - Left ventricular hypertrophy [Unknown]
  - Pyrexia [Unknown]
  - Hypomagnesaemia [Unknown]
  - Abdominal pain [Unknown]
  - Nephrotic syndrome [Unknown]
  - Hydronephrosis [Unknown]
  - Diplopia [Unknown]
  - Insomnia [Unknown]
  - Hyperhidrosis [Unknown]
  - Metabolic alkalosis [Unknown]
  - IIIrd nerve paralysis [Unknown]
  - Polyuria [Unknown]
  - Erectile dysfunction [Unknown]
  - Balance disorder [Unknown]
  - Hypoaesthesia [Unknown]
  - Abdominal distension [Unknown]
  - Gastrooesophageal reflux disease [Unknown]
  - Decreased appetite [Unknown]
  - Hypertension [Unknown]
  - Type 2 diabetes mellitus [Unknown]
  - Nephrogenic anaemia [Unknown]
  - Renal atrophy [Unknown]
  - Vitamin D deficiency [Unknown]
  - Hyperphosphataemia [Unknown]
  - Azotaemia [Unknown]
  - Memory impairment [Unknown]
  - Palpitations [Unknown]
  - Generalised oedema [Unknown]
  - Nausea [Unknown]
  - Injury [Unknown]
  - Iron deficiency anaemia [Unknown]
  - Pollakiuria [Unknown]
  - Thirst [Unknown]
  - Leukocytosis [Unknown]
  - Weight decreased [Unknown]
  - Accelerated hypertension [Unknown]
  - Cerebrovascular accident [Unknown]
  - Diabetic neuropathy [Unknown]
  - Nephrosclerosis [Unknown]
  - Acute kidney injury [Unknown]
  - Anxiety [Unknown]
  - Cardiomegaly [Unknown]
  - Urinary tract infection [Unknown]
  - Hypokalaemia [Unknown]
  - Gastritis [Unknown]
  - Abdominal hernia [Unknown]
  - Peripheral swelling [Unknown]
  - VIIth nerve paralysis [Unknown]
  - Secondary hyperthyroidism [Unknown]
  - Retinal detachment [Unknown]
  - Nephritis [Unknown]
  - Chronic kidney disease [Unknown]
  - Fatigue [Unknown]
  - Anhedonia [Unknown]
  - Type V hyperlipidaemia [Unknown]
  - Nocturia [Unknown]
  - Cerebral infarction [Unknown]
  - Retinopathy [Unknown]
  - Pain [Unknown]
  - Vitreous floaters [Unknown]
  - Vitreous haemorrhage [Unknown]
  - Abdominal discomfort [Unknown]
  - Essential hypertension [Unknown]
